FAERS Safety Report 10457879 (Version 2)
Quarter: 2014Q3

REPORT INFORMATION
  Report Type: Report from Study
  Country: US (occurrence: IT)
  Receive Date: 20140916
  Receipt Date: 20140924
  Transmission Date: 20150326
  Serious: No
  Sender: FDA-Public Use
  Company Number: IT-FRI-1000070717

PATIENT

DRUGS (7)
  1. ASENAPINE [Suspect]
     Active Substance: ASENAPINE
     Indication: SCHIZOAFFECTIVE DISORDER
     Route: 060
  2. LITHIUM [Suspect]
     Active Substance: LITHIUM CARBONATE
     Indication: MOOD ALTERED
  3. CARBAMAZEPINE. [Suspect]
     Active Substance: CARBAMAZEPINE
     Indication: MOOD ALTERED
  4. ASENAPINE [Suspect]
     Active Substance: ASENAPINE
     Indication: MANIA
     Route: 060
  5. ASENAPINE [Suspect]
     Active Substance: ASENAPINE
     Route: 060
  6. ASENAPINE [Suspect]
     Active Substance: ASENAPINE
     Indication: BIPOLAR I DISORDER
     Route: 060
  7. VALPROATE SODIUM. [Suspect]
     Active Substance: VALPROATE SODIUM
     Indication: MOOD ALTERED

REACTIONS (3)
  - Hypotension [Unknown]
  - Drug ineffective [Unknown]
  - Underdose [Unknown]
